FAERS Safety Report 11025081 (Version 1)
Quarter: 2015Q2

REPORT INFORMATION
  Report Type: Report from Study
  Country: JP (occurrence: None)
  Receive Date: 20150410
  Receipt Date: 20150410
  Transmission Date: 20150821
  Serious: Yes (Hospitalization)
  Sender: FDA-Public Use
  Company Number: 2010JP005541

PATIENT
  Age: 30 Year
  Sex: Female
  Weight: 53 kg

DRUGS (14)
  1. VESICARE [Concomitant]
     Active Substance: SOLIFENACIN SUCCINATE
  2. METHYLPREDNISOLONE (METHYLPREDNISOLOE SODIUM SUCCINATE) PER ORAL NOS? [Concomitant]
  3. BASILIXIMAB [Concomitant]
     Active Substance: BASILIXIMAB
  4. ALLOID G (SODIUM ALGINATE) [Concomitant]
  5. ACIROVEC (ACICLOVIR) [Concomitant]
  6. OLMETEC (LMESARTAN MEDOXOMIL) [Concomitant]
  7. ITRIZOLE (ITRACONAZOLE) [Concomitant]
  8. DENOSINE /00784201/ (GANCICLOVIR) [Concomitant]
  9. MYCOPHENOLATE MOFETIL. [Concomitant]
     Active Substance: MYCOPHENOLATE MOFETIL
  10. BAKTAR (SULFAMETHOXAZOLE_TRIMETHOPRIM) [Concomitant]
  11. VALIXA (VALGANCICLOVIR HYDROCHLORIDE) [Concomitant]
  12. GRACEPTOR (TACROLIMUS) CAPSULE [Suspect]
     Active Substance: TACROLIMUS
     Indication: PROPHYLAXIS AGAINST TRANSPLANT REJECTION
     Dosage: 2.5 MG, ONCE DAILY, ORAL
     Route: 048
     Dates: start: 20091211, end: 20091211
  13. TAKEPRON (LANSOPRAZOLE) [Concomitant]
     Active Substance: LANSOPRAZOLE
  14. AZATHIOPRINE. [Concomitant]
     Active Substance: AZATHIOPRINE

REACTIONS (5)
  - Neurogenic bladder [None]
  - Renal transplant [None]
  - Condition aggravated [None]
  - Cytomegalovirus test positive [None]
  - Exposure during pregnancy [None]

NARRATIVE: CASE EVENT DATE: 20100510
